FAERS Safety Report 23303294 (Version 1)
Quarter: 2023Q4

REPORT INFORMATION
  Report Type: Spontaneous
  Country: US (occurrence: US)
  Receive Date: 20231215
  Receipt Date: 20231215
  Transmission Date: 20240110
  Serious: Yes (Hospitalization)
  Sender: FDA-Public Use
  Company Number: US-SPECGX-T202301649

PATIENT
  Age: 4 Decade
  Sex: Female

DRUGS (7)
  1. FENTANYL TRANSDERMAL SYSTEM [Interacting]
     Active Substance: FENTANYL
     Indication: Pain
     Dosage: 37 MCG/H EVERY 72 HOURS
     Route: 062
  2. FENTANYL TRANSDERMAL SYSTEM [Interacting]
     Active Substance: FENTANYL
     Dosage: 50 MCG/H EVERY 72 HOURS
     Route: 062
  3. HYDROMORPHONE [Suspect]
     Active Substance: HYDROMORPHONE
     Indication: Breakthrough pain
     Dosage: 4 MILLIGRAM
     Route: 065
  4. HYDROMORPHONE [Suspect]
     Active Substance: HYDROMORPHONE
     Dosage: 1?2 DOSES, DAILY
     Route: 065
  5. CIPROFLOXACIN [Interacting]
     Active Substance: CIPROFLOXACIN
     Indication: Antibiotic therapy
     Dosage: UNK
     Route: 065
  6. AMOXICILLIN\CLAVULANIC ACID [Suspect]
     Active Substance: AMOXICILLIN\CLAVULANIC ACID
     Indication: Antibiotic therapy
     Dosage: UNK
     Route: 065
  7. AMOXICILLIN\CLAVULANIC ACID [Suspect]
     Active Substance: AMOXICILLIN\CLAVULANIC ACID
     Indication: Cellulitis

REACTIONS (7)
  - Cellulitis [Unknown]
  - Drug interaction [Unknown]
  - Myoclonus [Recovering/Resolving]
  - Toxicity to various agents [Unknown]
  - Fatigue [Unknown]
  - Somnolence [Recovering/Resolving]
  - Confusional state [Recovering/Resolving]
